FAERS Safety Report 21738620 (Version 6)
Quarter: 2024Q4

REPORT INFORMATION
  Report Type: Report from Study
  Country: US (occurrence: US)
  Receive Date: 20221216
  Receipt Date: 20241024
  Transmission Date: 20250115
  Serious: Yes (Hospitalization, Disabling, Other)
  Sender: NOVARTIS
  Company Number: US-002147023-NVSC2022US289697

PATIENT
  Sex: Male

DRUGS (2)
  1. ENTRESTO [Suspect]
     Active Substance: SACUBITRIL\VALSARTAN
     Indication: Product used for unknown indication
     Dosage: 1 DOSAGE FORM, BID
     Route: 048
     Dates: start: 202210, end: 20230811
  2. AMIODARONE [Concomitant]
     Active Substance: AMIODARONE
     Indication: Product used for unknown indication
     Dosage: UNK
     Route: 065

REACTIONS (22)
  - Presyncope [Unknown]
  - Malaise [Unknown]
  - COVID-19 [Unknown]
  - Ventricular hypertrophy [Unknown]
  - Loss of consciousness [Unknown]
  - Cardiac arrest [Unknown]
  - Atrial fibrillation [Unknown]
  - Cardiogenic shock [Unknown]
  - Dyspnoea [Unknown]
  - Dyspnoea exertional [Unknown]
  - Pain [Unknown]
  - Confusional state [Unknown]
  - Stress [Unknown]
  - Throat clearing [Unknown]
  - Rhinorrhoea [Unknown]
  - Heart rate decreased [Unknown]
  - Fatigue [Unknown]
  - Cough [Unknown]
  - Gait inability [Unknown]
  - Peripheral coldness [Unknown]
  - Dehydration [Unknown]
  - Blood pressure decreased [Unknown]

NARRATIVE: CASE EVENT DATE: 20220101
